FAERS Safety Report 21364055 (Version 3)
Quarter: 2022Q4

REPORT INFORMATION
  Report Type: Report from Study
  Country: US (occurrence: US)
  Receive Date: 20220922
  Receipt Date: 20221116
  Transmission Date: 20230112
  Serious: Yes (Death, Hospitalization, Other)
  Sender: FDA-Public Use
  Company Number: US-NOVARTISPH-NVSC2022US214160

PATIENT
  Sex: Female
  Weight: 59.7 kg

DRUGS (9)
  1. TASIGNA [Suspect]
     Active Substance: NILOTINIB
     Indication: Chronic myeloid leukaemia
     Dosage: 50 MG
     Route: 048
     Dates: start: 20220606, end: 20220607
  2. GLEEVEC [Suspect]
     Active Substance: IMATINIB MESYLATE
     Indication: Chronic myeloid leukaemia
     Dosage: 400 MG, BID
     Route: 048
     Dates: start: 20220608, end: 20220614
  3. GLEEVEC [Suspect]
     Active Substance: IMATINIB MESYLATE
     Dosage: 400 MG, QD
     Route: 048
     Dates: start: 20220614, end: 20220617
  4. GLEEVEC [Suspect]
     Active Substance: IMATINIB MESYLATE
     Dosage: 400 MG, QD
     Route: 048
     Dates: start: 20220628, end: 20220702
  5. SCEMBLIX [Suspect]
     Active Substance: ASCIMINIB HYDROCHLORIDE
     Indication: Chronic myeloid leukaemia
     Dosage: 50 MG, QD
     Route: 048
     Dates: start: 20220703, end: 20220704
  6. HYDREA [Suspect]
     Active Substance: HYDROXYUREA
     Indication: Product used for unknown indication
     Dosage: 1500 MG, BID
     Route: 065
     Dates: start: 20220606, end: 20220606
  7. HYDREA [Suspect]
     Active Substance: HYDROXYUREA
     Dosage: 1500 MG, TID
     Route: 065
     Dates: start: 20220606, end: 20220706
  8. HYDREA [Suspect]
     Active Substance: HYDROXYUREA
     Dosage: 200 MG, Q8H
     Route: 065
     Dates: start: 20220706, end: 20220706
  9. HYDREA [Suspect]
     Active Substance: HYDROXYUREA
     Dosage: 200 MG, Q6H
     Route: 065
     Dates: start: 20220706

REACTIONS (3)
  - Febrile neutropenia [Fatal]
  - Cytopenia [Unknown]
  - Rash [Unknown]
